FAERS Safety Report 9124571 (Version 1)
Quarter: 2013Q1

REPORT INFORMATION
  Report Type: Spontaneous
  Country: US (occurrence: US)
  Receive Date: 20130227
  Receipt Date: 20130227
  Transmission Date: 20140127
  Serious: No
  Sender: FDA-Public Use
  Company Number: US-ASTRAZENECA-2013SE10813

PATIENT
  Age: 61 Year
  Sex: Male
  Weight: 97.5 kg

DRUGS (6)
  1. NEXIUM [Suspect]
     Indication: GASTROOESOPHAGEAL REFLUX DISEASE
     Route: 048
     Dates: start: 2012
  2. NEXIUM [Suspect]
     Indication: GASTROOESOPHAGEAL REFLUX DISEASE
     Route: 048
     Dates: start: 2012
  3. METHOTREXATE [Concomitant]
  4. HUMIRA [Concomitant]
  5. FOLIC ACID [Concomitant]
  6. LIPITOR [Concomitant]

REACTIONS (5)
  - Adverse event [Unknown]
  - Diarrhoea [Unknown]
  - Headache [Unknown]
  - Flatulence [Unknown]
  - Dry mouth [Unknown]
